FAERS Safety Report 8184495-6 (Version None)
Quarter: 2012Q1

REPORT INFORMATION
  Report Type: 
  Country: None (occurrence: None)
  Receive Date: 20120305
  Receipt Date: 20120220
  Transmission Date: 20120608
  Serious: Yes (Other)
  Sender: FDA-Public Use
  Company Number: US-ROCHE-1041897

PATIENT
  Age: 84 Year
  Sex: Male

DRUGS (6)
  1. TOCILIZUMAB [Suspect]
     Indication: PRODUCT USED FOR UNKNOWN INDICATION
  2. CALCIUM [Concomitant]
  3. ENBREL [Suspect]
     Indication: RHEUMATOID ARTHRITIS
  4. VITAMIN B COMPLEX CAP [Concomitant]
  5. VITAMIN D [Concomitant]
  6. PRILOSEC [Concomitant]

REACTIONS (16)
  - NECK PAIN [None]
  - NODAL OSTEOARTHRITIS [None]
  - PRURITUS [None]
  - NUCHAL RIGIDITY [None]
  - MUSCULOSKELETAL STIFFNESS [None]
  - NODULE [None]
  - JOINT SWELLING [None]
  - PAIN IN EXTREMITY [None]
  - RHEUMATOID ARTHRITIS [None]
  - DRY MOUTH [None]
  - HAND DEFORMITY [None]
  - TENDERNESS [None]
  - SPINAL OSTEOARTHRITIS [None]
  - DRY EYE [None]
  - URINARY TRACT INFECTION [None]
  - RHEUMATOID NODULE [None]
